FAERS Safety Report 24752931 (Version 1)
Quarter: 2024Q4

REPORT INFORMATION
  Report Type: Spontaneous
  Country: IT (occurrence: IT)
  Receive Date: 20241219
  Receipt Date: 20241219
  Transmission Date: 20250115
  Serious: Yes (Hospitalization)
  Sender: BOEHRINGER INGELHEIM
  Company Number: None

PATIENT
  Age: 83 Year
  Sex: Male

DRUGS (10)
  1. PRADAXA [Suspect]
     Active Substance: DABIGATRAN ETEXILATE MESYLATE
     Indication: Atrial fibrillation
     Dosage: PRADAXA*60CPS 110MG (AS REPORTED)
     Route: 048
     Dates: start: 20211112, end: 20220622
  2. OMEPRAZOLO MYLAN GENERICS ITALIA [Concomitant]
     Indication: Gastritis prophylaxis
     Dosage: OMEPRAZOLO MY*28CPS GASTR 10MG (AS REPORTED)
     Route: 048
  3. FUROSEMIDE [Concomitant]
     Active Substance: FUROSEMIDE
     Indication: Oedema
     Dosage: FUROSEMIDE MY*30CPR 25MG (AS REPORTED) ? INE TABLET A DAY + 1 TABLET 3 TIMES A WEEK IN THE EVENING
     Route: 048
  4. FUROSEMIDE [Concomitant]
     Active Substance: FUROSEMIDE
     Indication: Cardiac failure
  5. IRBESARTAN DOC GENERICI [Concomitant]
     Indication: Myocardial ischaemia
     Dosage: IRBESARTAN DOC*28CPR 150MG (AS REPORTED)
     Route: 048
  6. REPAGLINIDE [Concomitant]
     Active Substance: DULOXETINE HYDROCHLORIDE\REPAGLINIDE\TICAGRELOR
     Indication: Type 2 diabetes mellitus
     Dosage: REPAGLINIDE SAN*90CPR 1MG (AS REPORTED)? 3 TABLETS PER DAY BEFORE MEALS
     Route: 048
  7. DUTASTERIDE DOC GENERICI [Concomitant]
     Indication: Benign prostatic hyperplasia
     Dosage: DUTASTERIDE DOC*30CPS 0,5MG (AS REPOTED)
     Route: 048
  8. ATORVASTATIN CALCIUM [Concomitant]
     Active Substance: ATORVASTATIN CALCIUM
     Indication: Dyslipidaemia
     Dosage: ATORVASTATINA TE*30CPR RIV20MG (AS REPORTED)? ONE TABLET A DAT AT 10P.M.
     Route: 048
  9. GLYCOPYRROLATE [Concomitant]
     Active Substance: GLYCOPYRROLATE
     Indication: Chronic obstructive pulmonary disease
     Dosage: TOVANOR BREEZHALER*30CPS 44MCG (AS RPEORTED)? 1 INHALATION OF ONE CPS (AS REPORTED) ONCE A DAY
     Route: 055
  10. TRULICITY [Concomitant]
     Active Substance: DULAGLUTIDE
     Indication: Type 2 diabetes mellitus
     Dosage: TRULICITY*4PEN 0,75MG 0,5ML ? 1 VIAL PER WEEK
     Route: 058
     Dates: start: 20210305, end: 20230520

REACTIONS (4)
  - Melaena [Recovered/Resolved]
  - Condition aggravated [Recovered/Resolved]
  - Normochromic normocytic anaemia [Recovered/Resolved]
  - Gastrointestinal angiodysplasia [Recovered/Resolved]

NARRATIVE: CASE EVENT DATE: 20220620
